FAERS Safety Report 16139064 (Version 1)
Quarter: 2019Q2

REPORT INFORMATION
  Report Type: Spontaneous
  Country: FR (occurrence: FR)
  Receive Date: 20190401
  Receipt Date: 20190401
  Transmission Date: 20190711
  Serious: Yes (Other)
  Sender: FDA-Public Use
  Company Number: FR-ACCORD-117290

PATIENT
  Age: 57 Year
  Sex: Male
  Weight: 63.5 kg

DRUGS (7)
  1. OXALIPLATIN ACCORD [Suspect]
     Active Substance: OXALIPLATIN
     Indication: ANGIOCENTRIC LYMPHOMA
     Route: 042
     Dates: start: 20190113, end: 20190113
  2. GEMCITABINE SANDOZ [Suspect]
     Active Substance: GEMCITABINE\GEMCITABINE HYDROCHLORIDE
     Indication: ANGIOCENTRIC LYMPHOMA
     Route: 042
     Dates: start: 20190112, end: 20190112
  3. DEXAMETHASONE. [Suspect]
     Active Substance: DEXAMETHASONE
     Indication: ANGIOCENTRIC LYMPHOMA
     Route: 048
     Dates: start: 20190111, end: 20190114
  4. ALPRAZOLAM. [Concomitant]
     Active Substance: ALPRAZOLAM
  5. BISOPROLOL [Concomitant]
     Active Substance: BISOPROLOL
  6. ESOMEPRAZOLE/ESOMEPRAZOLE MAGNESIUM/ESOMEPRAZOLE SODIUM [Concomitant]
  7. METHOTREXATE MYLAN [Suspect]
     Active Substance: METHOTREXATE SODIUM
     Indication: ANGIOCENTRIC LYMPHOMA
     Route: 042
     Dates: start: 20190112, end: 20190112

REACTIONS (2)
  - Off label use [Unknown]
  - Oedematous pancreatitis [Not Recovered/Not Resolved]

NARRATIVE: CASE EVENT DATE: 20190116
